FAERS Safety Report 13291284 (Version 1)
Quarter: 2017Q1

REPORT INFORMATION
  Report Type: Spontaneous
  Country: US (occurrence: US)
  Receive Date: 20170302
  Receipt Date: 20170302
  Transmission Date: 20170428
  Serious: Yes (Disabling)
  Sender: FDA-Public Use
  Company Number: None

PATIENT
  Age: 24 Year
  Sex: Male
  Weight: 76.5 kg

DRUGS (1)
  1. CIPROFLOXACIN HCL 500 MG [Suspect]
     Active Substance: CIPROFLOXACIN HYDROCHLORIDE
     Indication: PROSTATITIS
     Dosage: ?          QUANTITY:28 TABLET(S);?
     Route: 048
     Dates: start: 20141008, end: 20141028

REACTIONS (28)
  - Nausea [None]
  - Burning sensation [None]
  - Muscular weakness [None]
  - Tendonitis [None]
  - Tonsillitis [None]
  - Dyspepsia [None]
  - Tendon injury [None]
  - Arthropathy [None]
  - Periodontal disease [None]
  - Loose tooth [None]
  - Joint instability [None]
  - Gastritis erosive [None]
  - Tendon disorder [None]
  - Musculoskeletal disorder [None]
  - Pain [None]
  - Arthralgia [None]
  - Muscle atrophy [None]
  - Chest pain [None]
  - Nervous system disorder [None]
  - Fatigue [None]
  - Thyroid function test abnormal [None]
  - Headache [None]
  - Gingival bleeding [None]
  - Rectal haemorrhage [None]
  - Ligament laxity [None]
  - Abdominal pain [None]
  - Colitis ulcerative [None]
  - Oesophagitis [None]

NARRATIVE: CASE EVENT DATE: 20141028
